FAERS Safety Report 6830666-8 (Version None)
Quarter: 2010Q3

REPORT INFORMATION
  Report Type: 
  Country: None (occurrence: None)
  Receive Date: 20100712
  Receipt Date: 20100628
  Transmission Date: 20110219
  Serious: Yes (Hospitalization, Other)
  Sender: FDA-Public Use
  Company Number: US-BAYER-200936416NA

PATIENT
  Age: 23 Year
  Sex: Female
  Weight: 66 kg

DRUGS (10)
  1. YAZ [Suspect]
     Indication: CONTRACEPTION
     Dates: start: 20070701, end: 20071001
  2. ANTIBIOTICS [Concomitant]
  3. FLUCONAZOLE [Concomitant]
     Dates: start: 20070701, end: 20070901
  4. SULFAMETHOXAZOLE AND TRIMETHOPRIM [Concomitant]
     Dates: start: 20070710
  5. BACTRIM DS [Concomitant]
     Dates: start: 20070701
  6. MEDROXYPROGESTERONE [Concomitant]
     Indication: MENORRHAGIA
     Dates: start: 20071007
  7. LOVENOX [Concomitant]
     Indication: DEEP VEIN THROMBOSIS
     Route: 058
     Dates: start: 20090201, end: 20090801
  8. LOVENOX [Concomitant]
     Route: 058
     Dates: start: 20090901
  9. MOTRIN [Concomitant]
     Indication: HEADACHE
  10. WARFARIN SODIUM [Concomitant]

REACTIONS (5)
  - CHEST DISCOMFORT [None]
  - DEEP VEIN THROMBOSIS [None]
  - OEDEMA PERIPHERAL [None]
  - PAIN [None]
  - PULMONARY EMBOLISM [None]
